FAERS Safety Report 4956730-6 (Version None)
Quarter: 2006Q1

REPORT INFORMATION
  Report Type: 
  Country: None (occurrence: None)
  Receive Date: 20060329
  Receipt Date: 20060318
  Transmission Date: 20060701
  Serious: Yes (Death)
  Sender: FDA-Public Use
  Company Number: IN-GLAXOSMITHKLINE-B0417525A

PATIENT
  Age: 77 Year
  Sex: Male

DRUGS (1)
  1. AUGMENTIN '125' [Suspect]
     Indication: LOWER RESPIRATORY TRACT INFECTION
     Dosage: 1.2G UNKNOWN
     Route: 042
     Dates: start: 20060213, end: 20060213

REACTIONS (3)
  - ANAPHYLACTIC SHOCK [None]
  - DEATH [None]
  - INJECTION SITE VESICLES [None]
